FAERS Safety Report 15470580 (Version 2)
Quarter: 2019Q3

REPORT INFORMATION
  Report Type: Spontaneous
  Country: DK (occurrence: DK)
  Receive Date: 20181005
  Receipt Date: 20190830
  Transmission Date: 20191004
  Serious: Yes (Other)
  Sender: FDA-Public Use
  Company Number: DK-SA-2018SA270244

PATIENT

DRUGS (6)
  1. ACETYLSALICYLIC ACID [Suspect]
     Active Substance: ASPIRIN
     Dosage: 300 MG IF NO PRIOR ASPIRIN USE OR 100 MG IF PRIOR ASPIRIN USE ON A REGULAR BASIS
  2. ALTEPLASE. [Suspect]
     Active Substance: ALTEPLASE
     Indication: ACUTE MYOCARDIAL INFARCTION
     Dosage: 100 MG
     Route: 042
  3. CLOPIDOGREL BISULFATE. [Suspect]
     Active Substance: CLOPIDOGREL BISULFATE
     Indication: ANTICOAGULANT THERAPY
     Dosage: 300 MG IF BODY MASS { 80 KG OR 450 MG IF BODY MASS } 80 KG
  4. ENOXAPARIN SODIUM. [Suspect]
     Active Substance: ENOXAPARIN SODIUM
     Dosage: 30 MG
     Route: 042
  5. ACETYLSALICYLIC ACID [Suspect]
     Active Substance: ASPIRIN
     Dosage: UNK
  6. ENOXAPARIN SODIUM. [Suspect]
     Active Substance: ENOXAPARIN SODIUM
     Dosage: 2 MG/KG BODY WEIGHT UNTIL A COMPLETED ANGIOGRAM OR PCI AND FOR AT LEAST 24 HOURS FOLLOWING THE
     Route: 058

REACTIONS (1)
  - Coronary artery bypass [Unknown]
